FAERS Safety Report 20554347 (Version 2)
Quarter: 2022Q1

REPORT INFORMATION
  Report Type: Spontaneous
  Country: US (occurrence: None)
  Receive Date: 20220304
  Receipt Date: 20220310
  Transmission Date: 20220424
  Serious: Yes (Other)
  Sender: FDA-Public Use
  Company Number: 2022A091241

PATIENT
  Age: 55 Year
  Sex: Male
  Weight: 94.3 kg

DRUGS (38)
  1. PRILOSEC [Suspect]
     Active Substance: OMEPRAZOLE MAGNESIUM
     Indication: Gastrooesophageal reflux disease
     Route: 048
     Dates: end: 200111
  2. PRILOSEC [Suspect]
     Active Substance: OMEPRAZOLE MAGNESIUM
     Indication: Gastrooesophageal reflux disease
     Route: 065
     Dates: start: 200402
  3. LANSOPRAZOLE [Suspect]
     Active Substance: LANSOPRAZOLE
     Indication: Gastrooesophageal reflux disease
     Route: 065
     Dates: start: 200204, end: 200402
  4. SIMVASTATIN [Concomitant]
     Active Substance: SIMVASTATIN
     Indication: Blood cholesterol
     Dates: start: 200212, end: 202106
  5. TRAMADOL [Concomitant]
     Active Substance: TRAMADOL
     Indication: Pain
     Dates: start: 200405, end: 201512
  6. PIROXICAM [Concomitant]
     Active Substance: PIROXICAM
     Indication: Pain
     Dates: start: 200109, end: 200209
  7. CEPHALEXIN [Concomitant]
     Active Substance: CEPHALEXIN
     Indication: Infection
     Dates: start: 200412
  8. AMOXICILLIN [Concomitant]
     Active Substance: AMOXICILLIN
     Indication: Infection
     Dates: start: 200302
  9. CEFAZOLIN [Concomitant]
     Active Substance: CEFAZOLIN
     Indication: Infection
     Dates: start: 200208
  10. CEFAZOLIN [Concomitant]
     Active Substance: CEFAZOLIN
     Indication: Infection
     Dates: start: 200402
  11. CEFAZOLIN [Concomitant]
     Active Substance: CEFAZOLIN
     Indication: Infection
     Dates: start: 200412
  12. HALOPERIDOL [Concomitant]
     Active Substance: HALOPERIDOL
     Indication: Antipsychotic therapy
     Dates: start: 200402, end: 200702
  13. MELOXICAM [Concomitant]
     Active Substance: MELOXICAM
     Indication: Pain
     Dates: start: 201308, end: 201911
  14. HYDROCHLOROTHIAZIDE\LISINOPRIL [Concomitant]
     Active Substance: HYDROCHLOROTHIAZIDE\LISINOPRIL
     Indication: Hypertension
     Dates: start: 201209, end: 202010
  15. DICLOFENAC [Concomitant]
     Active Substance: DICLOFENAC
     Indication: Pain
     Dates: start: 201607, end: 202103
  16. ASPIRIN [Concomitant]
     Active Substance: ASPIRIN
     Indication: General physical health deterioration
     Dates: start: 201910
  17. ASIAN GINSENG [Concomitant]
     Active Substance: ASIAN GINSENG
     Indication: General physical health deterioration
     Dates: start: 201503, end: 2016
  18. OMEGA 3 [Concomitant]
     Active Substance: CAPSAICIN
     Indication: General physical health deterioration
     Dates: start: 201503
  19. MAGNESIUM OXIDE [Concomitant]
     Active Substance: MAGNESIUM OXIDE
     Indication: General physical health deterioration
     Dates: start: 201202, end: 201505
  20. MILK OF MAGNESIA [Concomitant]
     Active Substance: MAGNESIUM HYDROXIDE
     Dates: start: 200402
  21. CITALOPRAM [Concomitant]
     Active Substance: CITALOPRAM HYDROBROMIDE
  22. LIDOCAINE [Concomitant]
     Active Substance: LIDOCAINE
  23. HYDROCODONE [Concomitant]
     Active Substance: HYDROCODONE
  24. DIVALPROEX SODIUM [Concomitant]
     Active Substance: DIVALPROEX SODIUM
  25. ALBUTEROL [Concomitant]
     Active Substance: ALBUTEROL
  26. DOCUSATE [Concomitant]
     Active Substance: DOCUSATE
  27. NORTRIPTYLINE [Concomitant]
     Active Substance: NORTRIPTYLINE
  28. IPRATROPIUM [Concomitant]
     Active Substance: IPRATROPIUM
  29. BISACODYL [Concomitant]
     Active Substance: BISACODYL
  30. CLONAZEPAML [Concomitant]
  31. METOCLOPRAMIDE [Concomitant]
     Active Substance: METOCLOPRAMIDE
  32. SALSALATE [Concomitant]
     Active Substance: SALSALATE
  33. TIZANIDINE [Concomitant]
     Active Substance: TIZANIDINE
  34. RISPERIDONE [Concomitant]
     Active Substance: RISPERIDONE
  35. SERTRALINE [Concomitant]
     Active Substance: SERTRALINE HYDROCHLORIDE
  36. CHOLECALCIF [Concomitant]
  37. TRIAMCINOLONE [Concomitant]
     Active Substance: TRIAMCINOLONE
  38. FERROUS SULFATE [Concomitant]
     Active Substance: FERROUS SULFATE

REACTIONS (2)
  - Acute kidney injury [Not Recovered/Not Resolved]
  - Chronic kidney disease [Not Recovered/Not Resolved]

NARRATIVE: CASE EVENT DATE: 20150101
